FAERS Safety Report 5496088-X (Version None)
Quarter: 2007Q4

REPORT INFORMATION
  Report Type: 
  Country: None (occurrence: None)
  Receive Date: 20071025
  Receipt Date: 20070123
  Transmission Date: 20080405
  Serious: No
  Sender: FDA-Public Use
  Company Number: A0636708A

PATIENT
  Age: 69 Year
  Sex: Female

DRUGS (7)
  1. ADVAIR DISKUS 100/50 [Suspect]
     Indication: CHRONIC OBSTRUCTIVE PULMONARY DISEASE
     Dosage: 1PUFF TWICE PER DAY
     Route: 055
     Dates: start: 20040101
  2. PRILOSEC [Concomitant]
  3. COZAAR [Concomitant]
  4. FOSAMAX [Concomitant]
  5. CALCIUM [Concomitant]
  6. SINGULAIR [Concomitant]
  7. PULMICORT [Concomitant]

REACTIONS (2)
  - DRY EYE [None]
  - RESORPTION BONE INCREASED [None]
